FAERS Safety Report 26082468 (Version 1)
Quarter: 2025Q4

REPORT INFORMATION
  Report Type: Report from Study
  Country: US (occurrence: US)
  Receive Date: 20251124
  Receipt Date: 20251124
  Transmission Date: 20260117
  Serious: No
  Sender: SANDOZ
  Company Number: US-SANDOZ-SDZ2025US086949

PATIENT
  Sex: Female

DRUGS (2)
  1. OMNITROPE [Suspect]
     Active Substance: SOMATROPIN
     Indication: Turner^s syndrome
     Dosage: 2.4 MG, (10 MG/1.5 ML SOLUTION FOR INJECTION IN CARTRIDGE) OTHER, FREQUENCY: SIX DAYS A WEEK
     Route: 058
  2. OMNITROPE [Suspect]
     Active Substance: SOMATROPIN
     Indication: Turner^s syndrome
     Dosage: 2.4 MG, (10 MG/1.5 ML SOLUTION FOR INJECTION IN CARTRIDGE) OTHER, FREQUENCY: SIX DAYS A WEEK
     Route: 058

REACTIONS (2)
  - Circumstance or information capable of leading to medication error [Unknown]
  - Device mechanical issue [Unknown]
